FAERS Safety Report 7487338-9 (Version None)
Quarter: 2011Q2

REPORT INFORMATION
  Report Type: 
  Country: None (occurrence: None)
  Receive Date: 20110510
  Receipt Date: 20110425
  Transmission Date: 20111010
  Serious: Yes (Hospitalization)
  Sender: FDA-Public Use
  Company Number: 031721

PATIENT
  Age: 36 Year
  Sex: Male

DRUGS (7)
  1. KEPPRA [Suspect]
     Indication: PARTIAL SEIZURES WITH SECONDARY GENERALISATION
     Dosage: (1000 MG QD ORAL) ; (1500 MG QD ORAL)
     Route: 048
     Dates: start: 20110218, end: 20110418
  2. KEPPRA [Suspect]
     Indication: PARTIAL SEIZURES WITH SECONDARY GENERALISATION
     Dosage: (1000 MG QD ORAL) ; (1500 MG QD ORAL)
     Route: 048
     Dates: start: 20110419
  3. TEGRETOL [Suspect]
     Dosage: (600 MG ORAL)
     Route: 048
  4. ZONISAMIDE [Suspect]
     Dosage: (500 MG ORAL)
     Route: 048
  5. DEPAKENE [Suspect]
     Dosage: (1400 MG ORAL) ; (800 MG ORAL) ; (400 MG ORAL)
     Route: 048
     Dates: start: 20110219, end: 20110304
  6. DEPAKENE [Suspect]
     Dosage: (1400 MG ORAL) ; (800 MG ORAL) ; (400 MG ORAL)
     Route: 048
     Dates: end: 20110218
  7. DEPAKENE [Suspect]
     Dosage: (1400 MG ORAL) ; (800 MG ORAL) ; (400 MG ORAL)
     Route: 048
     Dates: start: 20110304

REACTIONS (2)
  - STATUS EPILEPTICUS [None]
  - PLATELET COUNT DECREASED [None]
